FAERS Safety Report 8122985-2 (Version None)
Quarter: 2012Q1

REPORT INFORMATION
  Report Type: 
  Country: None (occurrence: None)
  Receive Date: 20120208
  Receipt Date: 20120123
  Transmission Date: 20120608
  Serious: Yes (Other)
  Sender: FDA-Public Use
  Company Number: FR-PFIZER INC-K201101076

PATIENT
  Age: 74 Year
  Sex: Female

DRUGS (15)
  1. ISPAGHULA HUSK [Concomitant]
     Dosage: UNK
     Dates: start: 20110601, end: 20110630
  2. RISEDRONATE SODIUM [Concomitant]
     Dosage: UNK
     Dates: start: 20110601, end: 20110630
  3. TRAMADOL [Concomitant]
     Dosage: UNK
     Dates: start: 20110601, end: 20110630
  4. DILTIAZEM HCL [Concomitant]
     Dosage: UNK
     Dates: start: 20110513, end: 20110623
  5. SIMVASTATIN [Concomitant]
     Dosage: UNK
     Dates: start: 20110601, end: 20110825
  6. ALCLOMETASONE DIPROPIONATE [Concomitant]
     Dosage: UNK
     Dates: start: 20110621, end: 20110802
  7. AMITRIPTYLINE HYDROCHLORIDE [Concomitant]
     Dosage: UNK
     Dates: start: 20110601, end: 20110630
  8. PARACETAMOL [Concomitant]
     Dosage: UNK
     Dates: start: 20110728, end: 20110825
  9. ALTACE [Suspect]
     Dosage: UNK
     Route: 048
  10. CETIRIZINE [Concomitant]
     Dosage: UNK
     Dates: start: 20110513, end: 20110610
  11. LEVOTHYROXINE [Concomitant]
     Dosage: UNK
     Dates: start: 20110601, end: 20110825
  12. INFLUENZA VIRUS VACCINE [Concomitant]
     Dosage: UNK
  13. ASPIRIN [Concomitant]
     Dosage: UNK
     Dates: start: 20110601, end: 20110630
  14. FLUOROURACIL [Concomitant]
     Dosage: UNK
     Dates: start: 20110621, end: 20110802
  15. HYDROXOCOBALAMIN [Concomitant]
     Dosage: UNK
     Dates: start: 20110620, end: 20110621

REACTIONS (1)
  - RESTLESSNESS [None]
